FAERS Safety Report 9593238 (Version 1)
Quarter: 2013Q3

REPORT INFORMATION
  Report Type: Spontaneous
  Country: US (occurrence: None)
  Receive Date: 20130930
  Receipt Date: 20130930
  Transmission Date: 20140515
  Serious: No
  Sender: FDA-Public Use
  Company Number: 1000046808

PATIENT
  Age: 81 Year
  Sex: Female

DRUGS (4)
  1. LINZESS (LINACLOTIDE) (CAPSULES) [Suspect]
     Indication: CONSTIPATION
     Route: 048
     Dates: start: 20130715
  2. OXYCONTIN (OXYCODONE HYDROCHLORIDE) (OXYCODONE HYDROCHLORIDE) [Concomitant]
  3. GABAPENTIN (GABAPENTIN) (GABAPENTIN) [Concomitant]
  4. EXCEDRIN (ACETAMINOPHEN, ASPIRIN, CAFFEINE) (ACETAMINOPHEN, ASPIRIN, CAFFEINE) [Concomitant]

REACTIONS (1)
  - Dizziness [None]
